FAERS Safety Report 7402079-1 (Version None)
Quarter: 2011Q1

REPORT INFORMATION
  Report Type: 
  Country: None (occurrence: None)
  Receive Date: 20110330
  Receipt Date: 20110314
  Transmission Date: 20110831
  Serious: Yes (Other)
  Sender: FDA-Public Use
  Company Number: 2011-IT-0001

PATIENT
  Age: 43 Year
  Sex: Female

DRUGS (4)
  1. ABSTRAL [Suspect]
     Indication: BREAKTHROUGH PAIN
     Dosage: 2 DOSES OF 100MCG ADMINISTERED ORAL
     Route: 048
     Dates: start: 20110215, end: 20110215
  2. DEPALGOS (OXYCODONE HYDROCHLORIDE W/PARACETAMOL) [Concomitant]
  3. VALDOXAN (AGOMELATINE) [Concomitant]
  4. PROZAC [Concomitant]

REACTIONS (6)
  - DIZZINESS [None]
  - DRUG INEFFECTIVE [None]
  - SUICIDAL IDEATION [None]
  - HOT FLUSH [None]
  - HYPERHIDROSIS [None]
  - BREAKTHROUGH PAIN [None]
